FAERS Safety Report 6822482-8 (Version None)
Quarter: 2010Q3

REPORT INFORMATION
  Report Type: 
  Country: None (occurrence: None)
  Receive Date: 20100708
  Receipt Date: 20100630
  Transmission Date: 20110219
  Serious: Yes (Life-Threatening, Hospitalization, Disabling)
  Sender: FDA-Public Use
  Company Number: CA-SANOFI-AVENTIS-2010SA038516

PATIENT
  Age: 76 Year
  Sex: Male

DRUGS (3)
  1. CYCLOMEN [Suspect]
     Route: 065
     Dates: start: 20080101, end: 20090101
  2. TAMSULOSIN HCL [Concomitant]
     Indication: PROSTATIC DISORDER
     Route: 048
  3. FOLIC ACID [Concomitant]
     Indication: VITAMIN SUPPLEMENTATION
     Route: 048

REACTIONS (3)
  - CEREBROVASCULAR ACCIDENT [None]
  - CONVULSION [None]
  - PARALYSIS [None]
